FAERS Safety Report 17061222 (Version 1)
Quarter: 2019Q4

REPORT INFORMATION
  Report Type: Spontaneous
  Country: US (occurrence: US)
  Receive Date: 20191121
  Receipt Date: 20191121
  Transmission Date: 20200122
  Serious: No
  Sender: FDA-Public Use
  Company Number: US-ARRAY-2019-06471

PATIENT

DRUGS (6)
  1. HYDROCODONE [Concomitant]
     Active Substance: HYDROCODONE
     Indication: PAIN
  2. MEKTOVI [Suspect]
     Active Substance: BINIMETINIB
     Indication: PRODUCT USED FOR UNKNOWN INDICATION
     Dosage: 30 MG, BID
     Route: 065
     Dates: end: 20190909
  3. PREGABALIN. [Concomitant]
     Active Substance: PREGABALIN
     Indication: FIBROMYALGIA
  4. BRAFTOVI [Suspect]
     Active Substance: ENCORAFENIB
     Dosage: UNK
     Route: 065
     Dates: start: 20190930
  5. VENLAFAXINE [Concomitant]
     Active Substance: VENLAFAXINE HYDROCHLORIDE
     Indication: DEPRESSION
  6. BRAFTOVI [Suspect]
     Active Substance: ENCORAFENIB
     Indication: PRODUCT USED FOR UNKNOWN INDICATION
     Dosage: 225 MG, QD
     Route: 065
     Dates: end: 20190909

REACTIONS (2)
  - Rash erythematous [Not Recovered/Not Resolved]
  - Electrocardiogram QT prolonged [Recovered/Resolved]

NARRATIVE: CASE EVENT DATE: 20190909
